FAERS Safety Report 7378811-2 (Version None)
Quarter: 2011Q1

REPORT INFORMATION
  Report Type: 
  Country: None (occurrence: None)
  Receive Date: 20110328
  Receipt Date: 20110314
  Transmission Date: 20110831
  Serious: Yes (Other)
  Sender: FDA-Public Use
  Company Number: PHHY2011US20674

PATIENT
  Age: 82 Year
  Sex: Male
  Weight: 59.864 kg

DRUGS (1)
  1. ZOMETA [Suspect]
     Dosage: 3 MG, EVERY 3 MONTHS
     Route: 042
     Dates: start: 20101229

REACTIONS (1)
  - BONE DISORDER [None]
